FAERS Safety Report 8283004-0 (Version None)
Quarter: 2012Q2

REPORT INFORMATION
  Report Type: 
  Country: None (occurrence: None)
  Receive Date: 20120413
  Receipt Date: 20120329
  Transmission Date: 20120825
  Serious: Yes (Hospitalization)
  Sender: FDA-Public Use
  Company Number: JP-ROCHE-1045656

PATIENT
  Sex: Female
  Weight: 43 kg

DRUGS (5)
  1. MAO-TO [Concomitant]
     Indication: INFLUENZA
     Dosage: DOSAGE IS UNCERTAIN
     Route: 048
     Dates: start: 20120211
  2. ACETAMINOPHEN [Concomitant]
     Indication: INFLUENZA
     Dosage: DOSAGE IS UNCERTAIN
     Route: 065
     Dates: start: 20120211
  3. HANGEKOBOKUTO [Concomitant]
     Indication: PRODUCT USED FOR UNKNOWN INDICATION
     Dosage: DOSAGE IS UNCERTAIN.
     Route: 048
     Dates: start: 20120211
  4. TAMIFLU [Suspect]
     Indication: INFLUENZA
     Route: 048
     Dates: start: 20120211, end: 20120215
  5. TRANSAMINE CAP [Concomitant]
     Indication: INFLUENZA
     Dosage: DOSAGE IS UNCERTAIN
     Route: 065
     Dates: start: 20120211

REACTIONS (1)
  - AGRANULOCYTOSIS [None]
